FAERS Safety Report 6187323-3 (Version None)
Quarter: 2009Q2

REPORT INFORMATION
  Report Type: 
  Country: None (occurrence: None)
  Receive Date: 20090512
  Receipt Date: 20090430
  Transmission Date: 20091009
  Serious: Yes (Death, Hospitalization)
  Sender: FDA-Public Use
  Company Number: FR-JNJFOC-20090500939

PATIENT
  Sex: Male

DRUGS (9)
  1. TRAMADOL HCL [Suspect]
     Indication: DRUG USE FOR UNKNOWN INDICATION
     Dosage: 50 MG CAPSULE, 100-200 MG DAILY
     Route: 048
     Dates: start: 20080820, end: 20080905
  2. PREVISCAN ((PENTOXIFYLLINE) [Interacting]
     Route: 048
  3. PREVISCAN ((PENTOXIFYLLINE) [Interacting]
     Indication: ATRIAL FIBRILLATION
     Route: 048
  4. TYGACIL [Suspect]
     Indication: DRUG USE FOR UNKNOWN INDICATION
     Route: 042
  5. TAVANIC [Suspect]
     Indication: DRUG USE FOR UNKNOWN INDICATION
     Route: 048
  6. CEFTRIAXONE [Suspect]
     Route: 042
  7. CEFTRIAXONE [Suspect]
     Indication: DRUG USE FOR UNKNOWN INDICATION
     Route: 042
  8. OMIX [Concomitant]
  9. ATARAX [Concomitant]

REACTIONS (3)
  - CEREBRAL HAEMATOMA [None]
  - DRUG INTERACTION [None]
  - INTERNATIONAL NORMALISED RATIO INCREASED [None]
